FAERS Safety Report 4410032-5 (Version None)
Quarter: 2004Q3

REPORT INFORMATION
  Report Type: 
  Country: None (occurrence: None)
  Receive Date: 20040728
  Receipt Date: 20040720
  Transmission Date: 20050211
  Serious: Yes (Hospitalization)
  Sender: FDA-Public Use
  Company Number: PHBS2004IT09666

PATIENT
  Age: 70 Year
  Sex: Female

DRUGS (1)
  1. VOLTAREN [Suspect]
     Indication: ARTHRALGIA
     Dosage: 75 MG, QW
     Route: 030
     Dates: start: 20040628

REACTIONS (8)
  - DYSPNOEA [None]
  - FACE OEDEMA [None]
  - PRURITUS [None]
  - SHOCK [None]
  - SYNCOPE [None]
  - TONGUE OEDEMA [None]
  - URTICARIA [None]
  - URTICARIA GENERALISED [None]
